FAERS Safety Report 18730441 (Version 1)
Quarter: 2021Q1

REPORT INFORMATION
  Report Type: Spontaneous
  Country: FR (occurrence: FR)
  Receive Date: 20210112
  Receipt Date: 20210112
  Transmission Date: 20210419
  Serious: Yes (Death, Other)
  Sender: FDA-Public Use
  Company Number: FR-PFIZER INC-2021009183

PATIENT

DRUGS (9)
  1. CLINDAMYCIN PHOSPHATE. [Suspect]
     Active Substance: CLINDAMYCIN PHOSPHATE
     Indication: HIP ARTHROPLASTY
     Dosage: 600 MG
     Route: 048
  2. RIFAMPICIN [Suspect]
     Active Substance: RIFAMPIN
     Indication: HIP ARTHROPLASTY
     Dosage: UNK
  3. FUSIDIC ACID [Suspect]
     Active Substance: FUSIDIC ACID
     Indication: ARTHRITIS INFECTIVE
     Dosage: UNK
  4. CLINDAMYCIN PHOSPHATE. [Suspect]
     Active Substance: CLINDAMYCIN PHOSPHATE
     Indication: DEVICE RELATED INFECTION
     Dosage: UNK
  5. OXACILLIN [Suspect]
     Active Substance: OXACILLIN SODIUM
     Indication: ARTHRITIS INFECTIVE
  6. RIFAMPICIN [Suspect]
     Active Substance: RIFAMPIN
     Indication: DEVICE RELATED INFECTION
     Dosage: 600 MG, 2X/DAY
  7. OXACILLIN [Suspect]
     Active Substance: OXACILLIN SODIUM
     Indication: OSTEOMYELITIS
     Dosage: UNK
  8. ERYTHROMYCIN. [Suspect]
     Active Substance: ERYTHROMYCIN
     Dosage: UNK
  9. FUSIDIC ACID [Suspect]
     Active Substance: FUSIDIC ACID
     Indication: OSTEOMYELITIS

REACTIONS (3)
  - Arthritis infective [Fatal]
  - Toxic skin eruption [Unknown]
  - Drug ineffective [Unknown]
